FAERS Safety Report 12509176 (Version 3)
Quarter: 2016Q3

REPORT INFORMATION
  Report Type: Spontaneous
  Country: AU (occurrence: AU)
  Receive Date: 20160629
  Receipt Date: 20160726
  Transmission Date: 20161109
  Serious: No
  Sender: FDA-Public Use
  Company Number: AU-GILEAD-2016-0220650

PATIENT
  Age: 56 Year
  Sex: Female

DRUGS (2)
  1. DACLATASVIR. [Concomitant]
     Active Substance: DACLATASVIR
     Indication: HEPATITIS C
     Dosage: 60 MG, UNK
     Route: 048
     Dates: start: 20160407
  2. SOVALDI [Suspect]
     Active Substance: SOFOSBUVIR
     Indication: HEPATITIS C
     Dosage: 400 MG, UNK
     Route: 048
     Dates: start: 20160407

REACTIONS (1)
  - Oral lichen planus [Recovering/Resolving]

NARRATIVE: CASE EVENT DATE: 20160425
